FAERS Safety Report 16649221 (Version 2)
Quarter: 2019Q3

REPORT INFORMATION
  Report Type: Spontaneous
  Country: US (occurrence: US)
  Receive Date: 20190730
  Receipt Date: 20190731
  Transmission Date: 20191004
  Serious: Yes (Life-Threatening, Hospitalization, Other)
  Sender: FDA-Public Use
  Company Number: US-SUNOVION-2019SUN003152

PATIENT
  Sex: Male

DRUGS (1)
  1. BROVANA [Suspect]
     Active Substance: ARFORMOTEROL TARTRATE
     Indication: NON-SMALL CELL LUNG CANCER
     Dosage: 15 ?G/2ML
     Route: 055
     Dates: start: 201208

REACTIONS (5)
  - Fall [Not Recovered/Not Resolved]
  - Off label use [Unknown]
  - Head injury [Not Recovered/Not Resolved]
  - Non-Hodgkin^s lymphoma [Not Recovered/Not Resolved]
  - Non-small cell lung cancer recurrent [Not Recovered/Not Resolved]

NARRATIVE: CASE EVENT DATE: 201208
